FAERS Safety Report 25868164 (Version 1)
Quarter: 2025Q4

REPORT INFORMATION
  Report Type: Spontaneous
  Country: US (occurrence: US)
  Receive Date: 20251001
  Receipt Date: 20251001
  Transmission Date: 20260118
  Serious: Yes (Life-Threatening, Hospitalization)
  Sender: TEVA
  Company Number: US-TEVA-VS-3375601

PATIENT
  Age: 62 Year
  Sex: Male

DRUGS (2)
  1. ELTROMBOPAG [Suspect]
     Active Substance: ELTROMBOPAG
     Indication: Pancreatic carcinoma
     Route: 065
  2. HEPARIN [Suspect]
     Active Substance: HEPARIN SODIUM
     Indication: Pulmonary embolism
     Route: 042

REACTIONS (7)
  - Pulmonary embolism [Unknown]
  - Drug ineffective [Unknown]
  - Cerebral artery occlusion [Unknown]
  - Subarachnoid haemorrhage [Unknown]
  - Ischaemic stroke [Unknown]
  - Aphasia [Recovering/Resolving]
  - Hemiplegia [Unknown]
